FAERS Safety Report 7376395-6 (Version None)
Quarter: 2011Q1

REPORT INFORMATION
  Report Type: 
  Country: None (occurrence: None)
  Receive Date: 20110316
  Receipt Date: 20110207
  Transmission Date: 20110831
  Serious: Yes (Hospitalization)
  Sender: FDA-Public Use
  Company Number: 2128643-2011-00004

PATIENT
  Sex: Male

DRUGS (1)
  1. ALCOHOL SWABS AND PADS [Suspect]
     Indication: INJECTION

REACTIONS (1)
  - INJECTION SITE INFECTION [None]
